FAERS Safety Report 8869008 (Version 1)
Quarter: 2012Q4

REPORT INFORMATION
  Report Type: 
  Country: US (occurrence: US)
  Receive Date: 20121023
  Receipt Date: 20121023
  Transmission Date: 20130627
  Serious: No
  Sender: FDA-Public Use
  Company Number: US-AMGEN-USASP2012054488

PATIENT
  Age: 71 Year
  Sex: Female

DRUGS (12)
  1. ENBREL [Suspect]
     Indication: PSORIASIS
     Dosage: UNK
  2. TACLONEX [Concomitant]
     Dosage: 60 g, UNK
  3. HUMIRA [Concomitant]
     Indication: PSORIASIS
     Dosage: 40 mg/ 0.8 ML
     Dates: start: 201207, end: 201207
  4. HUMIRA [Concomitant]
     Dosage: 80 mg, Day 1
     Dates: start: 201207
  5. HUMIRA [Concomitant]
     Dosage: 40 mg, Day 8
     Dates: start: 201207
  6. HUMIRA [Concomitant]
     Dosage: 40 mg, Day 22
     Dates: start: 201207
  7. BIAXIN [Concomitant]
     Dosage: UNK
  8. CEFDINIR [Concomitant]
     Dosage: UNK
  9. CIPROFLOXACIN [Concomitant]
     Dosage: UNK
  10. VICODIN [Concomitant]
     Dosage: UNK
  11. ERYTHROMYCIN [Concomitant]
     Dosage: UNK
  12. ANTIBIOTICS [Concomitant]
     Dosage: UNK

REACTIONS (4)
  - Choking sensation [Unknown]
  - Ear discomfort [Unknown]
  - Hearing impaired [Unknown]
  - Application site pain [Unknown]
